FAERS Safety Report 4499795-0 (Version None)
Quarter: 2004Q4

REPORT INFORMATION
  Report Type: 
  Country: None (occurrence: None)
  Receive Date: 20041108
  Receipt Date: 20041027
  Transmission Date: 20050328
  Serious: Yes (Life-Threatening)
  Sender: FDA-Public Use
  Company Number: 04H-087-0279374-00

PATIENT

DRUGS (1)
  1. DEXMEDETOMIDINE INJECTION (DEXMEDETOMIDINE HYDROCHLORIDE INJECTION) (D [Suspect]
     Indication: SEDATION

REACTIONS (1)
  - RESPIRATORY ARREST [None]
